FAERS Safety Report 6321295-3 (Version None)
Quarter: 2009Q3

REPORT INFORMATION
  Report Type: 
  Country: None (occurrence: None)
  Receive Date: 20090822
  Receipt Date: 20090119
  Transmission Date: 20100115
  Serious: No
  Sender: FDA-Public Use
  Company Number: US-ABBOTT-09P-163-0496944-00

PATIENT
  Sex: Male

DRUGS (3)
  1. NIASPAN [Suspect]
     Indication: HIGH DENSITY LIPOPROTEIN DECREASED
     Route: 048
     Dates: start: 20030101, end: 20070101
  2. NIASPAN [Suspect]
     Route: 048
     Dates: end: 20070101
  3. NIASPAN [Suspect]
     Route: 048

REACTIONS (4)
  - FLUSHING [None]
  - GLAUCOMA [None]
  - MACULAR DEGENERATION [None]
  - PRURITUS [None]
